FAERS Safety Report 10674741 (Version 1)
Quarter: 2014Q4

REPORT INFORMATION
  Report Type: Report from Study
  Country: US (occurrence: US)
  Receive Date: 20141224
  Receipt Date: 20141224
  Transmission Date: 20150529
  Serious: Yes (Other)
  Sender: FDA-Public Use
  Company Number: PHEH2014US025286

PATIENT
  Sex: Female

DRUGS (1)
  1. GILENYA [Suspect]
     Active Substance: FINGOLIMOD HYDROCHLORIDE
     Indication: MULTIPLE SCLEROSIS
     Dosage: 0.5 MG, QD
     Route: 048

REACTIONS (10)
  - Muscular weakness [Unknown]
  - Epilepsy [Unknown]
  - Headache [Not Recovered/Not Resolved]
  - Bladder disorder [Unknown]
  - Back pain [Unknown]
  - Seizure [Unknown]
  - Occipital neuralgia [Not Recovered/Not Resolved]
  - Multiple sclerosis relapse [Unknown]
  - Pain in extremity [Unknown]
  - Hypertension [Unknown]
